FAERS Safety Report 14015795 (Version 5)
Quarter: 2018Q1

REPORT INFORMATION
  Report Type: Report from Study
  Country: US (occurrence: US)
  Receive Date: 20170927
  Receipt Date: 20180124
  Transmission Date: 20180508
  Serious: Yes (Hospitalization)
  Sender: FDA-Public Use
  Company Number: US-ACTELION-A-US2016-136135

PATIENT
  Age: 52 Year
  Sex: Female

DRUGS (3)
  1. ADCIRCA [Concomitant]
     Active Substance: TADALAFIL
  2. OPSUMIT [Suspect]
     Active Substance: MACITENTAN
     Dosage: UNK
     Route: 048
  3. OPSUMIT [Suspect]
     Active Substance: MACITENTAN
     Indication: PULMONARY ARTERIAL HYPERTENSION
     Dosage: 10 MG, QD
     Route: 048
     Dates: start: 20160506

REACTIONS (16)
  - Lung infection [Unknown]
  - Pneumonia [Unknown]
  - Acute respiratory failure [Unknown]
  - Panic attack [Unknown]
  - Nasopharyngitis [Unknown]
  - Blood carbon monoxide increased [Unknown]
  - Pruritus [Recovered/Resolved]
  - Anxiety [Unknown]
  - Dyspnoea [Unknown]
  - Fluid retention [Unknown]
  - Rhinorrhoea [Unknown]
  - Heart rate increased [Unknown]
  - Cough [Unknown]
  - Chronic obstructive pulmonary disease [Unknown]
  - Oxygen saturation decreased [Unknown]
  - Nasal congestion [Unknown]

NARRATIVE: CASE EVENT DATE: 20160629
